FAERS Safety Report 4747615-9 (Version None)
Quarter: 2005Q3

REPORT INFORMATION
  Report Type: 
  Country: None (occurrence: None)
  Receive Date: 20050818
  Receipt Date: 20050119
  Transmission Date: 20060218
  Serious: No
  Sender: FDA-Public Use
  Company Number: US-BRISTOL-MYERS SQUIBB COMPANY-12830519

PATIENT
  Age: 80 Year
  Sex: Female
  Weight: 53 kg

DRUGS (2)
  1. TEQUIN [Suspect]
     Indication: BRONCHITIS
     Route: 048
     Dates: start: 20040119
  2. MULTI-VITAMINS [Concomitant]

REACTIONS (1)
  - DIARRHOEA [None]
